FAERS Safety Report 14082878 (Version 1)
Quarter: 2017Q4

REPORT INFORMATION
  Report Type: Spontaneous
  Country: IE (occurrence: IE)
  Receive Date: 20171013
  Receipt Date: 20171013
  Transmission Date: 20180321
  Serious: Yes (Other)
  Sender: FDA-Public Use
  Company Number: IE-PFIZER INC-2012292097

PATIENT
  Age: 60 Year
  Sex: Male

DRUGS (11)
  1. LINEZOLID. [Interacting]
     Active Substance: LINEZOLID
     Indication: SEPSIS
     Dosage: UNK
     Dates: end: 20121113
  2. LIBRIUM [Interacting]
     Active Substance: CHLORDIAZEPOXIDE HYDROCHLORIDE
     Dosage: UNK
  3. VORICONAZOLE. [Suspect]
     Active Substance: VORICONAZOLE
     Indication: ESCHERICHIA INFECTION
     Dosage: 400 MG, 2X/DAY
     Route: 042
     Dates: start: 20121101, end: 20121113
  4. MEROPENEM. [Interacting]
     Active Substance: MEROPENEM
     Indication: ESCHERICHIA INFECTION
     Dosage: UNK
     Route: 042
     Dates: start: 20121105, end: 20121112
  5. DIFENE [Interacting]
     Active Substance: DICLOFENAC SODIUM
     Dosage: UNK
  6. COLOMYCIN [Interacting]
     Active Substance: COLISTIN
     Indication: ESCHERICHIA INFECTION
     Dosage: UNK
  7. GENTAMICIN. [Interacting]
     Active Substance: GENTAMICIN
     Indication: ESCHERICHIA INFECTION
     Dosage: UNK
  8. PARACETAMOL [Interacting]
     Active Substance: ACETAMINOPHEN
     Dosage: UNK
  9. AMIKACIN [Interacting]
     Active Substance: AMIKACIN
     Indication: ESCHERICHIA INFECTION
     Dosage: UNK
  10. LINEZOLID. [Interacting]
     Active Substance: LINEZOLID
     Indication: ESCHERICHIA INFECTION
  11. ESOMEPRAZOLE [Interacting]
     Active Substance: ESOMEPRAZOLE
     Route: 048

REACTIONS (4)
  - Renal impairment [Unknown]
  - Liver function test abnormal [Recovered/Resolved]
  - Drug interaction [Unknown]
  - Hyperhidrosis [Recovered/Resolved]
